FAERS Safety Report 10014062 (Version 1)
Quarter: 2014Q1

REPORT INFORMATION
  Report Type: Report from Study
  Country: MX (occurrence: MX)
  Receive Date: 20140317
  Receipt Date: 20140317
  Transmission Date: 20141002
  Serious: Yes (Other)
  Sender: FDA-Public Use
  Company Number: MX-ROCHE-1361374

PATIENT
  Age: 50 Year
  Sex: Male
  Weight: 99 kg

DRUGS (6)
  1. AVASTIN [Suspect]
     Indication: COLORECTAL CANCER
     Route: 065
  2. XELODA [Suspect]
     Indication: COLORECTAL CANCER
     Route: 065
  3. IRINOTECAN [Suspect]
     Indication: COLORECTAL CANCER
     Route: 065
  4. FLUOROURACIL [Suspect]
     Indication: COLORECTAL CANCER
     Route: 065
  5. FOLINIC ACID [Suspect]
     Indication: COLORECTAL CANCER
     Route: 065
  6. CISPLATINO [Suspect]
     Indication: COLORECTAL CANCER
     Route: 065

REACTIONS (4)
  - Disease progression [Unknown]
  - Nausea [Unknown]
  - Hypertension [Unknown]
  - Proteinuria [Unknown]
